FAERS Safety Report 20048392 (Version 5)
Quarter: 2022Q2

REPORT INFORMATION
  Report Type: Spontaneous
  Country: SA (occurrence: SA)
  Receive Date: 20211109
  Receipt Date: 20220405
  Transmission Date: 20220720
  Serious: Yes (Disabling, Other)
  Sender: FDA-Public Use
  Company Number: SA-NOVARTISPH-NVSC2021SA251248

PATIENT
  Age: 46 Year
  Sex: Female

DRUGS (1)
  1. GILENYA [Suspect]
     Active Substance: FINGOLIMOD HYDROCHLORIDE
     Indication: Relapsing-remitting multiple sclerosis
     Dosage: 0.5 MG, QD
     Route: 065
     Dates: start: 2020

REACTIONS (6)
  - Hemiparesis [Unknown]
  - Condition aggravated [Not Recovered/Not Resolved]
  - Dysphagia [Unknown]
  - Diplopia [Unknown]
  - Ataxia [Unknown]
  - Urinary incontinence [Unknown]
